FAERS Safety Report 8631289 (Version 8)
Quarter: 2014Q2

REPORT INFORMATION
  Report Type: Report from Study
  Country: US (occurrence: US)
  Receive Date: 20120622
  Receipt Date: 20140418
  Transmission Date: 20141212
  Serious: Yes (Hospitalization)
  Sender: FDA-Public Use
  Company Number: US-ACTELION-A-NJ2012-67662

PATIENT
  Age: 55 Year
  Sex: Female

DRUGS (4)
  1. VENTAVIS [Suspect]
     Indication: PORTOPULMONARY HYPERTENSION
     Dosage: 5 MCG, 6-9X/DAY
     Route: 055
     Dates: start: 20060809
  2. SILDENAFIL [Concomitant]
  3. COUMADIN [Concomitant]
  4. DIGOXIN [Concomitant]

REACTIONS (6)
  - Thrombosis [Unknown]
  - Nephrolithiasis [Unknown]
  - Bladder pain [Unknown]
  - Bladder disorder [Unknown]
  - Pneumonia [Unknown]
  - Asthma [Unknown]
